FAERS Safety Report 5737269-7 (Version None)
Quarter: 2008Q2

REPORT INFORMATION
  Report Type: 
  Country: None (occurrence: None)
  Receive Date: 20080512
  Receipt Date: 20080512
  Transmission Date: 20081010
  Serious: Yes (Life-Threatening, Disabling, Other)
  Sender: FDA-Public Use
  Company Number: None

PATIENT
  Age: 91 Year
  Sex: Male
  Weight: 88.4514 kg

DRUGS (1)
  1. DIGITEK .125 NOT HERE WITH ME [Suspect]
     Indication: HEART VALVE REPLACEMENT
     Dosage: 0125 I PILL X 1 A DAY PO
     Route: 048

REACTIONS (6)
  - ASTHENIA [None]
  - CONFUSIONAL STATE [None]
  - DIZZINESS [None]
  - MALAISE [None]
  - RESPIRATORY DISORDER [None]
  - VISUAL DISTURBANCE [None]
